FAERS Safety Report 14236574 (Version 1)
Quarter: 2017Q4

REPORT INFORMATION
  Report Type: Spontaneous
  Country: US (occurrence: US)
  Receive Date: 20171129
  Receipt Date: 20171129
  Transmission Date: 20180321
  Serious: No
  Sender: FDA-Public Use
  Company Number: US-PFIZER INC-2017510880

PATIENT
  Age: 70 Year
  Sex: Female
  Weight: 60 kg

DRUGS (4)
  1. IBRANCE [Suspect]
     Active Substance: PALBOCICLIB
     Indication: BREAST CANCER
     Dosage: 125 MG, CYCLIC (125 MG 1 CAPSULE BY MOUTH ONCE A DAY FOR 3 WEEKS, THEN OFF FOR 7 DAYS)
     Route: 048
     Dates: start: 20170929
  2. EXEMESTANE. [Concomitant]
     Active Substance: EXEMESTANE
     Indication: BREAST CANCER
     Dosage: 25 MG, 1X/DAY (25MG ONE TABLET BY MOUTH ONCE DAILY)
     Route: 048
     Dates: start: 20170929
  3. KLOR-CON [Concomitant]
     Active Substance: POTASSIUM CHLORIDE
     Indication: BLOOD POTASSIUM ABNORMAL
     Dosage: 10 MEQ, 1X/DAY (10MEQ 1 TABLET BY MOUTH ONCE A DAY)
     Route: 048
     Dates: start: 201710
  4. ATENOLOL AND CHLORTHALIDONE [Concomitant]
     Active Substance: ATENOLOL\CHLORTHALIDONE
     Indication: HYPERTENSION
     Dosage: 1 DF, 1X/DAY (ATENOLOL 50MG/CHLORTHALIDONE 25MG) ONE TABLET BY MOUTH ONCE A DAY)
     Route: 048

REACTIONS (3)
  - Pain in extremity [Not Recovered/Not Resolved]
  - Paraesthesia [Not Recovered/Not Resolved]
  - Hypoaesthesia [Not Recovered/Not Resolved]

NARRATIVE: CASE EVENT DATE: 20171122
